FAERS Safety Report 7973570-4 (Version None)
Quarter: 2011Q4

REPORT INFORMATION
  Report Type: 
  Country: None (occurrence: None)
  Receive Date: 20111213
  Receipt Date: 20111207
  Transmission Date: 20120403
  Serious: Yes (Other)
  Sender: FDA-Public Use
  Company Number: US-SHIRE-ALL1-2011-04839

PATIENT
  Sex: Female
  Weight: 61.224 kg

DRUGS (6)
  1. PENTASA [Suspect]
     Dosage: UNK UNK, 10-12 CAPSULES DAILY
     Route: 048
     Dates: start: 20110101, end: 20110901
  2. ANTIBIOTICS UNSPECIFIED [Concomitant]
     Indication: VOLVULUS
     Dosage: UNK UNK, UNKNOWN
     Route: 065
     Dates: start: 20110901
  3. PENTASA [Suspect]
     Dosage: 4000 MG,16 CAPSULES DAILY
     Dates: start: 20110901
  4. PENTASA [Suspect]
     Indication: CROHN'S DISEASE
     Dosage: 4000 MG, 16 CAPSULES DAILY
     Route: 048
     Dates: start: 20010101, end: 20110101
  5. VITAMIN D [Concomitant]
     Indication: SUPPLEMENTATION THERAPY
     Dosage: 1000 IU, 1X/DAY:QD
     Route: 048
  6. VITAMINS                           /00067501/ [Concomitant]
     Indication: SUPPLEMENTATION THERAPY
     Dosage: UNK, UNKNOWN
     Route: 048

REACTIONS (4)
  - OFF LABEL USE [None]
  - VOLVULUS [None]
  - BREAST CANCER [None]
  - PRODUCT QUALITY ISSUE [None]
